FAERS Safety Report 24912801 (Version 2)
Quarter: 2025Q1

REPORT INFORMATION
  Report Type: Report from Study
  Country: DE (occurrence: DE)
  Receive Date: 20250131
  Receipt Date: 20250203
  Transmission Date: 20250408
  Serious: No
  Sender: ROCHE
  Company Number: DE-ML39632-2422130-0

PATIENT
  Age: 48 Year
  Sex: Male
  Weight: 102 kg

DRUGS (10)
  1. OCREVUS [Suspect]
     Active Substance: OCRELIZUMAB
     Indication: Relapsing multiple sclerosis
     Route: 040
     Dates: start: 20190905, end: 20190919
  2. OCREVUS [Suspect]
     Active Substance: OCRELIZUMAB
     Route: 040
     Dates: start: 20200608
  3. OCREVUS [Suspect]
     Active Substance: OCRELIZUMAB
     Dosage: MOST RECENT DOSE RECEIVED ON 31-AUG-2023
     Route: 040
     Dates: start: 20230831
  4. TAMSULOSIN [Concomitant]
     Active Substance: TAMSULOSIN
     Route: 048
     Dates: start: 2021, end: 2021
  5. Comirnaty [Concomitant]
     Indication: COVID-19 immunisation
     Route: 058
     Dates: start: 2021
  6. Reaglia [Concomitant]
     Indication: Psychotic disorder
     Route: 048
     Dates: start: 20201002
  7. SPIKEVAX [Concomitant]
     Active Substance: CX-046684
     Indication: COVID-19 immunisation
     Route: 058
     Dates: start: 20211212, end: 20211212
  8. SPIKEVAX [Concomitant]
     Active Substance: CX-046684
     Route: 058
     Dates: start: 20220610, end: 20220610
  9. RISPERIDONE [Concomitant]
     Active Substance: RISPERIDONE
     Indication: Psychotic disorder
     Route: 048
     Dates: start: 2010, end: 20201102
  10. CITALOPRAM [Concomitant]
     Active Substance: CITALOPRAM
     Indication: Psychotic disorder
     Route: 048
     Dates: start: 20201102

REACTIONS (1)
  - COVID-19 [Recovered/Resolved]

NARRATIVE: CASE EVENT DATE: 20231227
